FAERS Safety Report 8402131-8 (Version None)
Quarter: 2012Q2

REPORT INFORMATION
  Report Type: 
  Country: None (occurrence: None)
  Receive Date: 20120529
  Receipt Date: 20120522
  Transmission Date: 20120825
  Serious: Yes (Death, Other)
  Sender: FDA-Public Use
  Company Number: 2012SP027464

PATIENT
  Age: 48 Year
  Sex: Male

DRUGS (5)
  1. TRUVADA [Concomitant]
  2. KALETRA [Concomitant]
  3. VICTRELIS [Suspect]
     Indication: HEPATITIS C
     Dosage: 800 MG;TID;PO
     Route: 048
     Dates: start: 20111018, end: 20120110
  4. REBETOL [Suspect]
     Indication: HEPATITIS C
     Dosage: 600 MG;BID; 800 MG;QD;
     Dates: start: 20110920
  5. VIRAFERONPEG [Suspect]
     Indication: HEPATITIS C
     Dosage: 120 MCG;QW;SC
     Route: 058
     Dates: start: 20110920

REACTIONS (5)
  - THROMBOCYTOPENIA [None]
  - ASTHENIA [None]
  - ANAEMIA [None]
  - PALLOR [None]
  - WEIGHT DECREASED [None]
